FAERS Safety Report 10528512 (Version 1)
Quarter: 2014Q4

REPORT INFORMATION
  Report Type: Report from Study
  Country: US (occurrence: US)
  Receive Date: 20141020
  Receipt Date: 20141020
  Transmission Date: 20150528
  Serious: Yes (Death, Life-Threatening, Hospitalization)
  Sender: FDA-Public Use
  Company Number: US-SA-2014SA142957

PATIENT
  Age: 56 Year
  Sex: Male

DRUGS (5)
  1. PLACEBO [Suspect]
     Active Substance: UNSPECIFIED INGREDIENT
     Indication: SOFT TISSUE SARCOMA
     Route: 042
     Dates: start: 20140416, end: 20140423
  2. TYLENOL [Concomitant]
     Active Substance: ACETAMINOPHEN
     Indication: PAIN
  3. GEMCITABINE [Suspect]
     Active Substance: GEMCITABINE\GEMCITABINE HYDROCHLORIDE
     Indication: SOFT TISSUE SARCOMA
     Route: 042
     Dates: start: 20140416, end: 20140423
  4. LORAZEPAM. [Suspect]
     Active Substance: LORAZEPAM
     Indication: ANXIETY
     Dosage: DOSE: 0.5-1 MG
     Route: 048
     Dates: start: 20140416, end: 20140428
  5. DOCETAXEL. [Suspect]
     Active Substance: DOCETAXEL
     Indication: SOFT TISSUE SARCOMA
     Route: 042
     Dates: start: 20140423, end: 20140423

REACTIONS (5)
  - Thrombocytopenia [Fatal]
  - Mental status changes [Fatal]
  - Portal vein thrombosis [Fatal]
  - Colitis [Fatal]
  - Neutropenia [Fatal]

NARRATIVE: CASE EVENT DATE: 20140428
